FAERS Safety Report 4519336-9 (Version None)
Quarter: 2004Q4

REPORT INFORMATION
  Report Type: 
  Country: None (occurrence: None)
  Receive Date: 20041206
  Receipt Date: 20040708
  Transmission Date: 20050328
  Serious: Yes (Death, Hospitalization)
  Sender: FDA-Public Use
  Company Number: DE-GLAXOSMITHKLINE-D0044196A

PATIENT
  Age: 22 Year
  Sex: Male

DRUGS (1)
  1. LAMICTAL [Suspect]
     Route: 048

REACTIONS (2)
  - BLISTER [None]
  - STEVENS-JOHNSON SYNDROME [None]
